FAERS Safety Report 11648324 (Version 4)
Quarter: 2016Q3

REPORT INFORMATION
  Report Type: Spontaneous
  Country: US (occurrence: US)
  Receive Date: 20151021
  Receipt Date: 20160727
  Transmission Date: 20161109
  Serious: Yes (Hospitalization, Other)
  Sender: FDA-Public Use
  Company Number: US-BAYER-2015-447042

PATIENT
  Age: 31 Year
  Sex: Female
  Weight: 63 kg

DRUGS (2)
  1. MIRENA [Suspect]
     Active Substance: LEVONORGESTREL
     Indication: CONTRACEPTION
     Dosage: 20 MCG/24HR, CONT
     Route: 015
     Dates: end: 201109
  2. MIRENA [Suspect]
     Active Substance: LEVONORGESTREL
     Indication: CONTRACEPTION
     Dosage: 20 MCG/24HR, CONT
     Route: 015
     Dates: start: 20130613, end: 20131213

REACTIONS (12)
  - Device dislocation [Recovered/Resolved]
  - Genital haemorrhage [None]
  - Nausea [None]
  - Back pain [None]
  - Hypoaesthesia [None]
  - Scar [None]
  - Abdominal pain lower [Recovered/Resolved]
  - Headache [None]
  - Unevaluable event [None]
  - Paraesthesia [None]
  - Genital haemorrhage [None]
  - Neck pain [None]

NARRATIVE: CASE EVENT DATE: 2013
